FAERS Safety Report 15598666 (Version 2)
Quarter: 2018Q4

REPORT INFORMATION
  Report Type: Report from Study
  Country: BR (occurrence: BR)
  Receive Date: 20181108
  Receipt Date: 20181109
  Transmission Date: 20190205
  Serious: Yes (Death, Hospitalization, Other)
  Sender: FDA-Public Use
  Company Number: PHHY2018BR141211

PATIENT
  Age: 47 Year
  Sex: Female
  Weight: 55 kg

DRUGS (1)
  1. LEE011 [Suspect]
     Active Substance: RIBOCICLIB
     Indication: BREAST CANCER
     Dosage: 600 MG, QD (3 TABLETS OF 200 MG) DAILY ON D1-D21 (28 DAY CYCLES))
     Route: 048
     Dates: start: 20180808, end: 20181008

REACTIONS (7)
  - Thrombocytopenia [Fatal]
  - Lymphangitis [Unknown]
  - Acute respiratory failure [Unknown]
  - Bone marrow infiltration [Unknown]
  - Asthenia [Unknown]
  - Metastases to bone [Unknown]
  - Cor pulmonale [Fatal]

NARRATIVE: CASE EVENT DATE: 20180926
